FAERS Safety Report 23386961 (Version 1)
Quarter: 2024Q1

REPORT INFORMATION
  Report Type: Spontaneous
  Country: US (occurrence: None)
  Receive Date: 20240109
  Receipt Date: 20240109
  Transmission Date: 20240409
  Serious: Yes (Death)
  Sender: FDA-Public Use
  Company Number: None

PATIENT
  Age: 59 Year
  Sex: Female
  Weight: 56.4 kg

DRUGS (1)
  1. EVEROLIMUS [Suspect]
     Active Substance: EVEROLIMUS
     Indication: Breast cancer female
     Dosage: 10 1 TABLET DAILY BY MOUTH
     Route: 048
     Dates: start: 20230728, end: 20240107

REACTIONS (1)
  - Death [None]

NARRATIVE: CASE EVENT DATE: 20240107
